FAERS Safety Report 16234902 (Version 3)
Quarter: 2019Q3

REPORT INFORMATION
  Report Type: Spontaneous
  Country: ES (occurrence: ES)
  Receive Date: 20190424
  Receipt Date: 20190901
  Transmission Date: 20191004
  Serious: Yes (Hospitalization, Other)
  Sender: FDA-Public Use
  Company Number: PHHY2019ES090474

PATIENT
  Age: 56 Year
  Sex: Female

DRUGS (4)
  1. OLMESARTAN [Concomitant]
     Active Substance: OLMESARTAN
     Indication: PRODUCT USED FOR UNKNOWN INDICATION
     Dosage: UNK
     Route: 065
  2. OMEPRAZOLE. [Suspect]
     Active Substance: OMEPRAZOLE
     Indication: HELICOBACTER INFECTION
     Dosage: 80 MG, QD (40 MG ,BID BEFORE BREAKFAST AND DINNER) (MISUSE)
     Route: 048
  3. BISOPROLOL [Concomitant]
     Active Substance: BISOPROLOL
     Indication: PRODUCT USED FOR UNKNOWN INDICATION
     Dosage: UNK
     Route: 065
  4. PYLERA [Suspect]
     Active Substance: BISMUTH SUBCITRATE POTASSIUM\METRONIDAZOLE\TETRACYCLINE HYDROCHLORIDE
     Indication: HELICOBACTER INFECTION
     Dosage: 12 DF, QD (UG/LITRE) (3 DF QID FOR BREAKFAST, LUNCH, SNACK AND DINNER)(MISUSE)
     Route: 048
     Dates: start: 20161005, end: 20161015

REACTIONS (3)
  - Clostridium difficile infection [Recovered/Resolved]
  - Wrong technique in product usage process [Unknown]
  - Clostridium difficile colitis [Recovered/Resolved]
